FAERS Safety Report 4788856-4 (Version None)
Quarter: 2005Q4

REPORT INFORMATION
  Report Type: 
  Country: None (occurrence: None)
  Receive Date: 20051004
  Receipt Date: 20050913
  Transmission Date: 20060501
  Serious: Yes (Hospitalization)
  Sender: FDA-Public Use
  Company Number: 6017377

PATIENT
  Age: 65 Year
  Sex: Male

DRUGS (5)
  1. DIAFORMIN (METFORMIN HYDROCHLORIDE) [Suspect]
     Dosage: 1 GM, (1 GM, 1 D)
     Route: 048
     Dates: start: 20050401, end: 20050401
  2. DUCENE (DIAZEPAM) [Suspect]
     Dates: start: 20050401
  3. NORVASC [Concomitant]
  4. AMARYL [Concomitant]
  5. AVAPRO [Suspect]
     Dosage: 150 MG,  1 DAY
     Dates: start: 20050405

REACTIONS (1)
  - ANGIONEUROTIC OEDEMA [None]
